FAERS Safety Report 7182808-5 (Version None)
Quarter: 2010Q4

REPORT INFORMATION
  Report Type: 
  Country: None (occurrence: None)
  Receive Date: 20101222
  Receipt Date: 20101208
  Transmission Date: 20110411
  Serious: Yes (Other)
  Sender: FDA-Public Use
  Company Number: TR-MYLANLABS-2010S1022866

PATIENT
  Age: 33 Year
  Sex: Female

DRUGS (2)
  1. FLUOXETINE [Suspect]
     Indication: DEPRESSION
     Route: 065
  2. FLUOXETINE [Suspect]
     Route: 065

REACTIONS (1)
  - MULTIPLE FRACTURES [None]
